FAERS Safety Report 21765730 (Version 1)
Quarter: 2022Q4

REPORT INFORMATION
  Report Type: Report from Study
  Country: CO (occurrence: CO)
  Receive Date: 20221222
  Receipt Date: 20221222
  Transmission Date: 20230113
  Serious: Yes (Hospitalization, Other)
  Sender: FDA-Public Use
  Company Number: CO-002147023-NVSC2020CO339996

PATIENT
  Sex: Female

DRUGS (2)
  1. TASIGNA [Suspect]
     Active Substance: NILOTINIB
     Indication: Chronic myeloid leukaemia
     Dosage: 600 MG, QD
     Route: 048
  2. TASIGNA [Suspect]
     Active Substance: NILOTINIB
     Dosage: 300 MG, Q12H
     Route: 048

REACTIONS (6)
  - Splenomegaly [Unknown]
  - Malaise [Unknown]
  - Chronic myeloid leukaemia recurrent [Unknown]
  - Abdominal pain [Unknown]
  - Pain [Unknown]
  - Inappropriate schedule of product administration [Unknown]
